FAERS Safety Report 4889948-1 (Version None)
Quarter: 2006Q1

REPORT INFORMATION
  Report Type: 
  Country: None (occurrence: None)
  Receive Date: 20060123
  Receipt Date: 20060123
  Transmission Date: 20060701
  Serious: Yes (Death)
  Sender: FDA-Public Use
  Company Number: None

PATIENT
  Age: 90 Year
  Sex: Female
  Weight: 61.2 kg

DRUGS (1)
  1. WARFARIN 2 MG [Suspect]
     Indication: ATRIAL FIBRILLATION
     Dosage: 2 MG DAILY PO
     Route: 048

REACTIONS (2)
  - HAEMATEMESIS [None]
  - INTERNATIONAL NORMALISED RATIO INCREASED [None]
